FAERS Safety Report 9263564 (Version 4)
Quarter: 2013Q4

REPORT INFORMATION
  Report Type: Spontaneous
  Country: US (occurrence: US)
  Receive Date: 20130430
  Receipt Date: 20131001
  Transmission Date: 20140711
  Serious: No
  Sender: FDA-Public Use
  Company Number: US-009507513-1304USA015418

PATIENT
  Sex: Female

DRUGS (3)
  1. PEGINTRON [Suspect]
     Indication: HEPATITIS C
     Dosage: UNK
     Dates: start: 20130408
  2. REBETOL [Suspect]
     Indication: HEPATITIS C
     Dosage: UNK
     Route: 048
     Dates: start: 20130408, end: 20130918
  3. VICTRELIS [Suspect]
     Indication: HEPATITIS C
     Dosage: UNK
     Route: 048
     Dates: start: 20130506

REACTIONS (21)
  - Hyperhidrosis [Unknown]
  - Hyperhidrosis [Unknown]
  - Eye pain [Unknown]
  - Somnolence [Unknown]
  - Memory impairment [Unknown]
  - Hair texture abnormal [Unknown]
  - Skin disorder [Unknown]
  - Pallor [Unknown]
  - Chills [Unknown]
  - Pyrexia [Unknown]
  - Fatigue [Unknown]
  - Influenza like illness [Unknown]
  - Chills [Unknown]
  - Pruritus [Unknown]
  - Urticaria [Unknown]
  - Pyrexia [Unknown]
  - Fatigue [Unknown]
  - Alopecia [Unknown]
  - Alopecia [Unknown]
  - White blood cell count decreased [Unknown]
  - Asthenia [Unknown]
